FAERS Safety Report 4849291-3 (Version None)
Quarter: 2005Q4

REPORT INFORMATION
  Report Type: 
  Country: None (occurrence: None)
  Receive Date: 20051209
  Receipt Date: 20051129
  Transmission Date: 20060501
  Serious: Yes (Other)
  Sender: FDA-Public Use
  Company Number: US-JNJFOC-20050900263

PATIENT
  Age: 87 Year
  Sex: Female
  Weight: 36.29 kg

DRUGS (1)
  1. DURAGESIC-100 [Suspect]
     Route: 062
     Dates: end: 20050823

REACTIONS (5)
  - DEPRESSED LEVEL OF CONSCIOUSNESS [None]
  - DRUG WITHDRAWAL SYNDROME [None]
  - PLEURAL EFFUSION [None]
  - SOMNOLENCE [None]
  - TRANSIENT ISCHAEMIC ATTACK [None]
